FAERS Safety Report 12059784 (Version 22)
Quarter: 2022Q3

REPORT INFORMATION
  Report Type: Report from Study
  Country: FR (occurrence: FR)
  Receive Date: 20160210
  Receipt Date: 20220815
  Transmission Date: 20221026
  Serious: Yes (Life-Threatening, Hospitalization, Other)
  Sender: FDA-Public Use
  Company Number: FR-PFIZER INC-2016058593

PATIENT
  Age: 62 Year
  Sex: Male
  Weight: 112 kg

DRUGS (13)
  1. APIXABAN [Interacting]
     Active Substance: APIXABAN
     Indication: Poisoning
     Dosage: 230 MILLIGRAM. TOTAL
     Route: 048
     Dates: start: 20151222, end: 20151222
  2. APIXABAN [Interacting]
     Active Substance: APIXABAN
     Indication: Anticoagulant therapy
     Dosage: 230 MILLIGRAM, (PRESUMED INGESTED DOSE 23 X 10 MG(230 MG)
     Route: 048
  3. APIXABAN [Interacting]
     Active Substance: APIXABAN
     Indication: Cerebrovascular accident prophylaxis
  4. TAHOR [Interacting]
     Active Substance: ATORVASTATIN CALCIUM
     Indication: Poisoning
     Dosage: 400 MG, TOTAL (20 TABLETS OF 20 MG)
     Route: 048
     Dates: start: 20151222, end: 20151222
  5. AMLODIPINE BESYLATE [Interacting]
     Active Substance: AMLODIPINE BESYLATE
     Indication: Poisoning
     Dosage: 100 MG (10 TABLETS OF 10 MG)
     Route: 048
     Dates: start: 20151222, end: 20151222
  6. BISOPROLOL FUMARATE [Interacting]
     Active Substance: BISOPROLOL FUMARATE
     Indication: Poisoning
     Dosage: 520 MILLIGRAM, TOTAL
     Route: 048
     Dates: start: 20151222, end: 20151222
  7. ATORVASTATIN CALCIUM [Interacting]
     Active Substance: ATORVASTATIN CALCIUM
     Route: 065
  8. ESIDREX [Interacting]
     Active Substance: HYDROCHLOROTHIAZIDE
     Indication: Poisoning
     Dosage: 750 MG (30 TABLETS OF 25 MG)
     Route: 048
     Dates: start: 20151222, end: 20151222
  9. CLOMIPRAMINE [Interacting]
     Active Substance: CLOMIPRAMINE
     Indication: Poisoning
     Dosage: 600 MG (24 TABLETS OF 25 MG)
     Route: 048
     Dates: start: 20151222, end: 20151222
  10. ACETAMINOPHEN [Interacting]
     Active Substance: ACETAMINOPHEN
     Indication: Poisoning
     Dosage: 4 GRAM, TOTAL
     Route: 048
     Dates: start: 20151222, end: 20151222
  11. POTASSIUM [Interacting]
     Active Substance: POTASSIUM
     Dosage: 20 G, TOTAL
     Route: 048
  12. POTASSIUM CHLORIDE [Interacting]
     Active Substance: POTASSIUM CHLORIDE
     Indication: Poisoning
     Dosage: 20000 MG (20 TABLETS OF 1000 MG)
     Route: 048
     Dates: start: 20151222, end: 20151222
  13. HYDROCHLOROTHIAZIDE [Interacting]
     Active Substance: HYDROCHLOROTHIAZIDE
     Dosage: 750 MG, SINGLE
     Route: 048

REACTIONS (9)
  - Hypovolaemic shock [Recovered/Resolved]
  - Cardiogenic shock [Recovered/Resolved]
  - Hypokalaemia [Recovered/Resolved]
  - Drug level increased [Recovered/Resolved]
  - Toxicity to various agents [Recovered/Resolved]
  - Drug interaction [Unknown]
  - Poisoning deliberate [Unknown]
  - Intentional overdose [Unknown]
  - Intentional overdose [Unknown]

NARRATIVE: CASE EVENT DATE: 20151222
